FAERS Safety Report 5578431-6 (Version None)
Quarter: 2007Q4

REPORT INFORMATION
  Report Type: 
  Country: None (occurrence: None)
  Receive Date: 20071227
  Receipt Date: 20071119
  Transmission Date: 20080405
  Serious: Yes (Other)
  Sender: FDA-Public Use
  Company Number: 2007AP001349

PATIENT
  Age: 45 Year
  Sex: Female

DRUGS (2)
  1. TRAZODONE HCL [Suspect]
     Indication: SLEEP DISORDER
     Dosage: 25 MG; HS; PO, 50 MG; HS; PO
     Route: 048
     Dates: start: 20071105, end: 20071108
  2. TRAZODONE HCL [Suspect]
     Indication: SLEEP DISORDER
     Dosage: 25 MG; HS; PO, 50 MG; HS; PO
     Route: 048
     Dates: start: 20071109

REACTIONS (3)
  - ALANINE AMINOTRANSFERASE INCREASED [None]
  - ASPARTATE AMINOTRANSFERASE INCREASED [None]
  - PANCREATIC NEOPLASM [None]
